FAERS Safety Report 6611034-0 (Version None)
Quarter: 2010Q1

REPORT INFORMATION
  Report Type: 
  Country: None (occurrence: None)
  Receive Date: 20100222
  Receipt Date: 20100205
  Transmission Date: 20100710
  Serious: Yes (Hospitalization)
  Sender: FDA-Public Use
  Company Number: 008746

PATIENT
  Age: 75 Year
  Sex: Female

DRUGS (1)
  1. PLETAL [Suspect]
     Indication: PAIN IN EXTREMITY
     Dosage: 100 MG, BID ORAL
     Route: 048
     Dates: start: 20090801, end: 20091201

REACTIONS (1)
  - RENAL FAILURE ACUTE [None]
